FAERS Safety Report 8512942-6 (Version None)
Quarter: 2012Q3

REPORT INFORMATION
  Report Type: 
  Country: None (occurrence: None)
  Receive Date: 20120716
  Receipt Date: 20120709
  Transmission Date: 20120928
  Serious: Yes (Death, Hospitalization, Other)
  Sender: FDA-Public Use
  Company Number: CN-ELI_LILLY_AND_COMPANY-CN201206005227

PATIENT
  Age: 50 Year
  Sex: Female

DRUGS (1)
  1. ALIMTA [Suspect]
     Indication: LUNG NEOPLASM MALIGNANT
     Dosage: 500 MG, EVERY 21 DAYS
     Route: 042
     Dates: start: 20120607

REACTIONS (3)
  - LOSS OF CONSCIOUSNESS [None]
  - DEATH [None]
  - NEOPLASM PROGRESSION [None]
